FAERS Safety Report 21553587 (Version 3)
Quarter: 2022Q4

REPORT INFORMATION
  Report Type: Spontaneous
  Country: JP (occurrence: JP)
  Receive Date: 20221104
  Receipt Date: 20221201
  Transmission Date: 20230113
  Serious: Yes (Hospitalization, Other)
  Sender: FDA-Public Use
  Company Number: JP-BAXTER-2022BAX023469

PATIENT
  Age: 57 Year
  Sex: Female

DRUGS (11)
  1. CYCLOPHOSPHAMIDE [Suspect]
     Active Substance: CYCLOPHOSPHAMIDE
     Indication: Breast cancer stage II
     Dosage: 1000 MG/BODY/DAY (125 MG/1,000 MG/BODY), TC THERAPY, DISCONTINUED
     Route: 065
     Dates: start: 201612
  2. CYCLOPHOSPHAMIDE [Suspect]
     Active Substance: CYCLOPHOSPHAMIDE
     Indication: Invasive ductal breast carcinoma
     Dosage: 500 MG/M2 (AC THERAPY)
     Route: 065
     Dates: start: 202010
  3. DOCETAXEL [Suspect]
     Active Substance: DOCETAXEL
     Indication: Breast cancer stage II
     Dosage: 125 MG/DAY (125 MG/1,000 MG/BODY), TC THERAPY, DISCONTINUED
     Route: 065
     Dates: start: 201612
  4. DOCETAXEL [Suspect]
     Active Substance: DOCETAXEL
     Indication: Invasive ductal breast carcinoma
  5. ANASTROZOLE [Concomitant]
     Active Substance: ANASTROZOLE
     Indication: Invasive ductal breast carcinoma
     Dosage: ENDOCRINE THERAPY (ANA)
     Route: 065
  6. ANASTROZOLE [Concomitant]
     Active Substance: ANASTROZOLE
     Dosage: CONTINUED
     Route: 065
  7. FULVESTRANT [Concomitant]
     Active Substance: FULVESTRANT
     Indication: Invasive ductal breast carcinoma
     Route: 065
  8. XELODA [Concomitant]
     Active Substance: CAPECITABINE
     Indication: Invasive ductal breast carcinoma
     Dosage: UNK
     Route: 065
     Dates: start: 201911
  9. PACLITAXEL [Concomitant]
     Active Substance: PACLITAXEL
     Indication: Invasive ductal breast carcinoma
     Dosage: 80 MG/M2
     Route: 065
     Dates: start: 202002
  10. ERIBULIN [Concomitant]
     Active Substance: ERIBULIN
     Indication: Invasive ductal breast carcinoma
     Dosage: 1.4 MG/M2
     Route: 065
     Dates: start: 2020
  11. ADRIAMYCIN [Concomitant]
     Active Substance: DOXORUBICIN HYDROCHLORIDE
     Indication: Invasive ductal breast carcinoma
     Dosage: 50 MG/M2, AC THERAPY
     Route: 065
     Dates: start: 202010

REACTIONS (6)
  - Haemolysis [Recovering/Resolving]
  - Anaemia [Recovering/Resolving]
  - Jaundice [Recovering/Resolving]
  - Disease progression [Recovering/Resolving]
  - Decreased appetite [Unknown]
  - Nausea [Unknown]
